FAERS Safety Report 7889428-5 (Version None)
Quarter: 2011Q4

REPORT INFORMATION
  Report Type: 
  Country: None (occurrence: None)
  Receive Date: 20111103
  Receipt Date: 20111028
  Transmission Date: 20120403
  Serious: Yes (Death, Other)
  Sender: FDA-Public Use
  Company Number: US-PFIZER INC-2011264706

PATIENT
  Sex: Male
  Weight: 8.617 kg

DRUGS (1)
  1. TESSALON [Suspect]
     Dosage: 200 MG, TOOK 2-4 CAPSULES
     Route: 048
     Dates: start: 20110823

REACTIONS (6)
  - RESPIRATORY ARREST [None]
  - ACCIDENTAL OVERDOSE [None]
  - VOMITING [None]
  - LETHARGY [None]
  - DEATH [None]
  - ACCIDENTAL DRUG INTAKE BY CHILD [None]
